FAERS Safety Report 11663739 (Version 3)
Quarter: 2016Q1

REPORT INFORMATION
  Report Type: Spontaneous
  Country: MX (occurrence: MX)
  Receive Date: 20151027
  Receipt Date: 20160110
  Transmission Date: 20160525
  Serious: Yes (Hospitalization, Other)
  Sender: FDA-Public Use
  Company Number: MX-ROCHE-1649992

PATIENT
  Age: 63 Year
  Sex: Male
  Weight: 58 kg

DRUGS (8)
  1. ACTRON (MEXICO) [Concomitant]
     Dosage: INITIAL DOSE 600 MG CURRENT DOSE 400 MG/DAY
     Route: 065
  2. ZELBORAF [Suspect]
     Active Substance: VEMURAFENIB
     Dosage: 1 TABLET (240MG) EVERY 24HOURS
     Route: 048
     Dates: start: 20151021, end: 20151029
  3. ZELBORAF [Suspect]
     Active Substance: VEMURAFENIB
     Dosage: 2 TABLETS AT THE MORNING. 1 TABLET AT THE NIGHT
     Route: 048
     Dates: start: 20151106, end: 20151120
  4. ZELBORAF [Suspect]
     Active Substance: VEMURAFENIB
     Dosage: 2 TABLET (240MG) EVERY 12 HOURS
     Route: 048
     Dates: start: 20151121
  5. COLCHICINE. [Suspect]
     Active Substance: COLCHICINE
     Indication: PRODUCT USED FOR UNKNOWN INDICATION
     Dosage: 1 TABLET EVERY 12 HOURS
     Route: 065
     Dates: start: 20151017
  6. METICORTEN [Concomitant]
     Active Substance: PREDNISONE
     Dosage: INITIAL DOSE 15MG EVERY 12 HOURS. CURRENTLY: 10MG EVERY 12 HOURS
     Route: 065
  7. ZELBORAF [Suspect]
     Active Substance: VEMURAFENIB
     Indication: METASTATIC MALIGNANT MELANOMA
     Dosage: 2 TABLET (240MG) EVERY 12 HOURS
     Route: 048
     Dates: start: 201509, end: 20151017
  8. ZELBORAF [Suspect]
     Active Substance: VEMURAFENIB
     Dosage: 1 TABLET (240MG) EVERY 12 HOURS
     Route: 048
     Dates: start: 20151030, end: 20151105

REACTIONS (10)
  - Pericarditis [Recovered/Resolved]
  - Chest pain [Recovered/Resolved]
  - Squamous cell carcinoma of skin [Not Recovered/Not Resolved]
  - Uveitis [Recovered/Resolved]
  - Diarrhoea [Recovered/Resolved]
  - Flatulence [Not Recovered/Not Resolved]
  - Pyrexia [Recovered/Resolved]
  - Cough [Not Recovered/Not Resolved]
  - Nausea [Not Recovered/Not Resolved]
  - Diarrhoea [Recovered/Resolved]

NARRATIVE: CASE EVENT DATE: 201509
